FAERS Safety Report 9794690 (Version 1)
Quarter: 2014Q1

REPORT INFORMATION
  Report Type: Spontaneous
  Country: US (occurrence: US)
  Receive Date: 20140102
  Receipt Date: 20140102
  Transmission Date: 20141002
  Serious: No
  Sender: FDA-Public Use
  Company Number: US-BAXTER-2013BAX050841

PATIENT
  Age: 26 Year
  Sex: Female
  Weight: 47.4 kg

DRUGS (2)
  1. FLEXBUMIN [Suspect]
     Indication: CARDIAC DISORDER
     Route: 042
     Dates: start: 20131211, end: 20131211
  2. FLEXBUMIN [Suspect]
     Indication: OFF LABEL USE

REACTIONS (1)
  - Pyrexia [Unknown]
